FAERS Safety Report 23116058 (Version 1)
Quarter: 2023Q4

REPORT INFORMATION
  Report Type: Spontaneous
  Country: US (occurrence: US)
  Receive Date: 20231027
  Receipt Date: 20231027
  Transmission Date: 20240110
  Serious: No
  Sender: FDA-Public Use
  Company Number: US-PFIZER INC-2016253386

PATIENT
  Sex: Female

DRUGS (2)
  1. EFFEXOR XR [Suspect]
     Active Substance: VENLAFAXINE HYDROCHLORIDE
     Indication: Product used for unknown indication
     Dosage: 150 MG (60 DAY SUPPLY 30)
     Route: 065
  2. EFFEXOR XR [Suspect]
     Active Substance: VENLAFAXINE HYDROCHLORIDE
     Dosage: 300 MG, DAILY (150MG CAPSULE / QUANTITY = 60 / DAY SUPPLY = 30 / 2 CAPSULES DAILY/ TWO A DAY)
     Route: 065

REACTIONS (1)
  - Prescribed overdose [Unknown]
